FAERS Safety Report 9594131 (Version 1)
Quarter: 2013Q4

REPORT INFORMATION
  Report Type: Report from Study
  Country: CO (occurrence: CO)
  Receive Date: 20131004
  Receipt Date: 20131004
  Transmission Date: 20140711
  Serious: Yes (Death, Hospitalization)
  Sender: FDA-Public Use
  Company Number: CO-US-EMD SERONO, INC.-7241138

PATIENT
  Age: 18 Year
  Sex: Male
  Weight: 33 kg

DRUGS (1)
  1. SAIZEN [Suspect]
     Indication: BODY HEIGHT BELOW NORMAL
     Dosage: 8MG/24UNITS
     Route: 058
     Dates: start: 20100601, end: 20130601

REACTIONS (2)
  - Renal failure chronic [Unknown]
  - Cardiac arrest [Fatal]
